FAERS Safety Report 9694094 (Version 1)
Quarter: 2013Q4

REPORT INFORMATION
  Report Type: Spontaneous
  Country: AU (occurrence: AU)
  Receive Date: 20131118
  Receipt Date: 20131118
  Transmission Date: 20140711
  Serious: Yes (Other)
  Sender: FDA-Public Use
  Company Number: AU-ABBVIE-13P-008-1158041-00

PATIENT
  Age: 17 Year
  Sex: Female

DRUGS (6)
  1. EPILIM [Suspect]
     Indication: PRODUCT USED FOR UNKNOWN INDICATION
  2. CHLORPROMAZINE HYDROCHLORIDE [Suspect]
     Indication: PRODUCT USED FOR UNKNOWN INDICATION
  3. ZYPREXA [Suspect]
     Indication: PRODUCT USED FOR UNKNOWN INDICATION
  4. ABILIFY [Concomitant]
     Indication: PRODUCT USED FOR UNKNOWN INDICATION
  5. TEMAZEPAM [Concomitant]
     Indication: PRODUCT USED FOR UNKNOWN INDICATION
  6. DIAZEPAM [Concomitant]
     Indication: PRODUCT USED FOR UNKNOWN INDICATION

REACTIONS (9)
  - Delirium [Unknown]
  - Intentional self-injury [Unknown]
  - Loss of consciousness [Unknown]
  - Suicide attempt [Unknown]
  - Akathisia [Unknown]
  - Hallucination [Unknown]
  - Pruritus [Unknown]
  - Rash [Unknown]
  - Tremor [Unknown]
